FAERS Safety Report 13343687 (Version 1)
Quarter: 2017Q1

REPORT INFORMATION
  Report Type: Report from Study
  Country: None (occurrence: US)
  Receive Date: 20170316
  Receipt Date: 20170316
  Transmission Date: 20170428
  Serious: Yes (Hospitalization)
  Sender: FDA-Public Use
  Company Number: US-ABBVIE-17K-163-1833919-00

PATIENT
  Age: 70 Year
  Sex: Male
  Weight: 82.63 kg

DRUGS (3)
  1. SONATA [Concomitant]
     Active Substance: ZALEPLON
     Indication: SLEEP DISORDER THERAPY
  2. HUMIRA [Suspect]
     Active Substance: ADALIMUMAB
     Indication: CROHN^S DISEASE
     Dosage: STARTER DOSE
     Route: 058
     Dates: start: 20160510, end: 20160510
  3. HUMIRA [Suspect]
     Active Substance: ADALIMUMAB
     Route: 058
     Dates: start: 2016, end: 20161220

REACTIONS (7)
  - Respiratory distress [Recovered/Resolved]
  - Sepsis [Recovered/Resolved]
  - Lymphadenopathy [Recovered/Resolved]
  - Pulmonary mass [Unknown]
  - Animal bite [Recovered/Resolved]
  - Fatigue [Recovered/Resolved]
  - Influenza [Recovered/Resolved]

NARRATIVE: CASE EVENT DATE: 201605
